FAERS Safety Report 18726444 (Version 1)
Quarter: 2021Q1

REPORT INFORMATION
  Report Type: Spontaneous
  Country: CH (occurrence: CH)
  Receive Date: 20210111
  Receipt Date: 20210111
  Transmission Date: 20210419
  Serious: Yes (Hospitalization, Other)
  Sender: FDA-Public Use
  Company Number: CH-GUERBET-CH-20210001

PATIENT
  Age: 30 Year
  Sex: Female
  Weight: 60 kg

DRUGS (1)
  1. OPTIRAY 300 [Suspect]
     Active Substance: IOVERSOL
     Indication: COMPUTERISED TOMOGRAM THORAX
     Route: 042
     Dates: start: 20201228, end: 20201228

REACTIONS (7)
  - Urinary incontinence [Recovering/Resolving]
  - Foaming at mouth [Recovering/Resolving]
  - Epilepsy [Recovering/Resolving]
  - Diarrhoea [Recovering/Resolving]
  - Lip swelling [Recovering/Resolving]
  - Fatigue [Recovering/Resolving]
  - Cough [Recovering/Resolving]

NARRATIVE: CASE EVENT DATE: 20201228
